FAERS Safety Report 19720335 (Version 1)
Quarter: 2021Q3

REPORT INFORMATION
  Report Type: Spontaneous
  Country: CA (occurrence: CA)
  Receive Date: 20210818
  Receipt Date: 20210818
  Transmission Date: 20211014
  Serious: Yes (Other)
  Sender: FDA-Public Use
  Company Number: CA-AMERICAN REGENT INC-2021002149

PATIENT
  Age: 43 Year
  Sex: Female

DRUGS (2)
  1. VENOFER [Suspect]
     Active Substance: IRON SUCROSE
     Indication: IRON DEFICIENCY ANAEMIA
     Dosage: 5.0 MILLILITER
     Route: 065
  2. VENOFER [Suspect]
     Active Substance: IRON SUCROSE
     Indication: ANAEMIA

REACTIONS (4)
  - Blood pressure decreased [Unknown]
  - Burning sensation [Unknown]
  - Flank pain [Unknown]
  - Limb discomfort [Unknown]
